FAERS Safety Report 20072829 (Version 5)
Quarter: 2023Q1

REPORT INFORMATION
  Report Type: Report from Study
  Country: JP (occurrence: JP)
  Receive Date: 20211116
  Receipt Date: 20230223
  Transmission Date: 20230418
  Serious: Yes (Other)
  Sender: FDA-Public Use
  Company Number: JP-CELLTRION INC.-2021JP015260

PATIENT

DRUGS (49)
  1. INVESTIGATIONAL BIOSIMILARS [Suspect]
     Active Substance: INVESTIGATIONAL BIOSIMILARS
     Indication: HER2 positive gastric cancer
     Dosage: 420 MILLIGRAM, QD
     Route: 041
     Dates: start: 20210716, end: 20210716
  2. INVESTIGATIONAL BIOSIMILARS [Suspect]
     Active Substance: INVESTIGATIONAL BIOSIMILARS
     Dosage: 330 MILLIGRAM, QD
     Route: 041
     Dates: start: 20210806, end: 20210806
  3. INVESTIGATIONAL BIOSIMILARS [Suspect]
     Active Substance: INVESTIGATIONAL BIOSIMILARS
     Dosage: 300 MILLIGRAM, QD
     Route: 041
     Dates: start: 20210830, end: 20210830
  4. INVESTIGATIONAL BIOSIMILARS [Suspect]
     Active Substance: INVESTIGATIONAL BIOSIMILARS
     Dosage: 300 MILLIGRAM, QD
     Route: 041
     Dates: start: 20210921, end: 20210921
  5. INVESTIGATIONAL BIOSIMILARS [Suspect]
     Active Substance: INVESTIGATIONAL BIOSIMILARS
     Dosage: 300 MILLIGRAM, QD
     Route: 041
     Dates: start: 20211012, end: 20211012
  6. INVESTIGATIONAL BIOSIMILARS [Suspect]
     Active Substance: INVESTIGATIONAL BIOSIMILARS
     Dosage: 300 MILLIGRAM, QD
     Route: 041
     Dates: start: 20211102, end: 20211102
  7. INVESTIGATIONAL BIOSIMILARS [Suspect]
     Active Substance: INVESTIGATIONAL BIOSIMILARS
     Dosage: 300 MILLIGRAM, QD
     Route: 041
     Dates: start: 20211130, end: 20211130
  8. INVESTIGATIONAL BIOSIMILARS [Suspect]
     Active Substance: INVESTIGATIONAL BIOSIMILARS
     Dosage: 300 MILLIGRAM, QD
     Route: 041
     Dates: start: 20211221, end: 20211221
  9. INVESTIGATIONAL BIOSIMILARS [Suspect]
     Active Substance: INVESTIGATIONAL BIOSIMILARS
     Dosage: 300 MILLIGRAM, QD
     Route: 041
     Dates: start: 20220111, end: 20220111
  10. INVESTIGATIONAL BIOSIMILARS [Suspect]
     Active Substance: INVESTIGATIONAL BIOSIMILARS
     Dosage: 300 MILLIGRAM, QD
     Route: 041
     Dates: start: 20220201, end: 20220201
  11. INVESTIGATIONAL BIOSIMILARS [Suspect]
     Active Substance: INVESTIGATIONAL BIOSIMILARS
     Dosage: 300 MILLIGRAM, QD
     Route: 041
     Dates: start: 20220222, end: 20220222
  12. INVESTIGATIONAL BIOSIMILARS [Suspect]
     Active Substance: INVESTIGATIONAL BIOSIMILARS
     Dosage: 300 MILLIGRAM, QD
     Route: 041
     Dates: start: 20220315, end: 20220315
  13. INVESTIGATIONAL BIOSIMILARS [Suspect]
     Active Substance: INVESTIGATIONAL BIOSIMILARS
     Dosage: 300 MILLIGRAM, QD
     Route: 041
     Dates: start: 20220405, end: 20220405
  14. INVESTIGATIONAL BIOSIMILARS [Suspect]
     Active Substance: INVESTIGATIONAL BIOSIMILARS
     Dosage: 300 MILLIGRAM, QD
     Route: 041
     Dates: start: 20220426, end: 20220426
  15. INVESTIGATIONAL BIOSIMILARS [Suspect]
     Active Substance: INVESTIGATIONAL BIOSIMILARS
     Dosage: 300 MILLIGRAM, QD
     Route: 041
     Dates: start: 20220517, end: 20220517
  16. INVESTIGATIONAL BIOSIMILARS [Suspect]
     Active Substance: INVESTIGATIONAL BIOSIMILARS
     Dosage: 300 MILLIGRAM, QD
     Route: 041
     Dates: start: 20220607, end: 20220607
  17. OXALIPLATIN [Suspect]
     Active Substance: OXALIPLATIN
     Indication: HER2 positive gastric cancer
     Dosage: 200 MILLIGRAM, QD
     Route: 041
     Dates: start: 20210716, end: 20210716
  18. OXALIPLATIN [Suspect]
     Active Substance: OXALIPLATIN
     Dosage: 200 MILLIGRAM, QD
     Route: 041
     Dates: start: 20210806, end: 20210806
  19. OXALIPLATIN [Suspect]
     Active Substance: OXALIPLATIN
     Dosage: 190 MILLIGRAM, QD
     Route: 041
     Dates: start: 20210830, end: 20210830
  20. OXALIPLATIN [Suspect]
     Active Substance: OXALIPLATIN
     Dosage: 190 MILLIGRAM, QD
     Route: 041
     Dates: start: 20210921, end: 20210921
  21. OXALIPLATIN [Suspect]
     Active Substance: OXALIPLATIN
     Dosage: 190 MILLIGRAM, QD
     Route: 041
     Dates: start: 20211012, end: 20211012
  22. OXALIPLATIN [Suspect]
     Active Substance: OXALIPLATIN
     Dosage: 170 MILLIGRAM, QD
     Route: 041
     Dates: start: 20211102, end: 20211102
  23. OXALIPLATIN [Suspect]
     Active Substance: OXALIPLATIN
     Dosage: 150 MILLIGRAM, QD
     Route: 041
     Dates: start: 20211121, end: 20211121
  24. OXALIPLATIN [Suspect]
     Active Substance: OXALIPLATIN
     Dosage: 150 MILLIGRAM, QD
     Route: 041
     Dates: start: 20220111, end: 20220111
  25. OXALIPLATIN [Suspect]
     Active Substance: OXALIPLATIN
     Dosage: 150 MILLIGRAM, QD
     Route: 041
     Dates: start: 20220222, end: 20220222
  26. OXALIPLATIN [Suspect]
     Active Substance: OXALIPLATIN
     Dosage: 150 MILLIGRAM, QD
     Route: 041
     Dates: start: 20220405, end: 20220405
  27. OXALIPLATIN [Suspect]
     Active Substance: OXALIPLATIN
     Dosage: 150 MILLIGRAM, QD
     Route: 041
     Dates: start: 20220426, end: 20220426
  28. OXALIPLATIN [Suspect]
     Active Substance: OXALIPLATIN
     Dosage: 150 MILLIGRAM, QD
     Route: 041
     Dates: start: 20220517, end: 20220517
  29. OXALIPLATIN [Suspect]
     Active Substance: OXALIPLATIN
     Dosage: 150 MILLIGRAM, QD
     Route: 041
     Dates: start: 20220607, end: 20220607
  30. GIMERACIL\OTERACIL\TEGAFUR [Suspect]
     Active Substance: GIMERACIL\OTERACIL\TEGAFUR
     Indication: HER2 positive gastric cancer
     Dosage: 120 MILLIGRAM, QD
     Route: 048
     Dates: start: 20210716, end: 20210729
  31. GIMERACIL\OTERACIL\TEGAFUR [Suspect]
     Active Substance: GIMERACIL\OTERACIL\TEGAFUR
     Dosage: 120 MILLIGRAM, QD
     Route: 048
     Dates: start: 20210806, end: 20210819
  32. GIMERACIL\OTERACIL\TEGAFUR [Suspect]
     Active Substance: GIMERACIL\OTERACIL\TEGAFUR
     Dosage: 120 MILLIGRAM, QD
     Route: 048
     Dates: start: 20210830, end: 20210912
  33. GIMERACIL\OTERACIL\TEGAFUR [Suspect]
     Active Substance: GIMERACIL\OTERACIL\TEGAFUR
     Dosage: 120 MILLIGRAM, QD
     Route: 048
     Dates: start: 20210921, end: 20211004
  34. GIMERACIL\OTERACIL\TEGAFUR [Suspect]
     Active Substance: GIMERACIL\OTERACIL\TEGAFUR
     Dosage: 120 MILLIGRAM, QD
     Route: 048
     Dates: start: 20211012, end: 20211025
  35. GIMERACIL\OTERACIL\TEGAFUR [Suspect]
     Active Substance: GIMERACIL\OTERACIL\TEGAFUR
     Dosage: 120 MILLIGRAM, QD
     Route: 048
     Dates: start: 20211102, end: 20211115
  36. GIMERACIL\OTERACIL\TEGAFUR [Suspect]
     Active Substance: GIMERACIL\OTERACIL\TEGAFUR
     Dosage: 120 MILLIGRAM, QD
     Route: 048
     Dates: start: 20211130, end: 20211213
  37. GIMERACIL\OTERACIL\TEGAFUR [Suspect]
     Active Substance: GIMERACIL\OTERACIL\TEGAFUR
     Dosage: 120 MILLIGRAM, QD
     Route: 048
     Dates: start: 20211221, end: 20220103
  38. GIMERACIL\OTERACIL\TEGAFUR [Suspect]
     Active Substance: GIMERACIL\OTERACIL\TEGAFUR
     Dosage: 120 MILLIGRAM, QD
     Route: 048
     Dates: start: 20220111, end: 20220124
  39. GIMERACIL\OTERACIL\TEGAFUR [Suspect]
     Active Substance: GIMERACIL\OTERACIL\TEGAFUR
     Dosage: 120 MILLIGRAM, QD
     Route: 048
     Dates: start: 20220201, end: 20220214
  40. GIMERACIL\OTERACIL\TEGAFUR [Suspect]
     Active Substance: GIMERACIL\OTERACIL\TEGAFUR
     Dosage: 120 MILLIGRAM, QD
     Route: 048
     Dates: start: 20220222, end: 20220307
  41. GIMERACIL\OTERACIL\TEGAFUR [Suspect]
     Active Substance: GIMERACIL\OTERACIL\TEGAFUR
     Dosage: 120 MILLIGRAM, QD
     Route: 048
     Dates: start: 20220315, end: 20220328
  42. GIMERACIL\OTERACIL\TEGAFUR [Suspect]
     Active Substance: GIMERACIL\OTERACIL\TEGAFUR
     Dosage: 120 MILLIGRAM, QD
     Route: 048
     Dates: start: 20220405, end: 20220418
  43. GIMERACIL\OTERACIL\TEGAFUR [Suspect]
     Active Substance: GIMERACIL\OTERACIL\TEGAFUR
     Dosage: 120 MILLIGRAM, QD
     Route: 048
     Dates: start: 20220426, end: 20220509
  44. GIMERACIL\OTERACIL\TEGAFUR [Suspect]
     Active Substance: GIMERACIL\OTERACIL\TEGAFUR
     Dosage: 120 MILLIGRAM, QD
     Route: 048
     Dates: start: 20220517, end: 20220530
  45. GIMERACIL\OTERACIL\TEGAFUR [Suspect]
     Active Substance: GIMERACIL\OTERACIL\TEGAFUR
     Dosage: 120 MILLIGRAM, QD
     Route: 048
     Dates: start: 20220607, end: 20220620
  46. CANDESARTAN [Concomitant]
     Active Substance: CANDESARTAN
     Indication: Hypertension
     Dosage: UNK
  47. AMLODIPINE [Concomitant]
     Active Substance: AMLODIPINE BESYLATE
     Indication: Hypertension
     Dosage: UNK
  48. FAMOTIDINE [Concomitant]
     Active Substance: FAMOTIDINE
     Indication: Allergy prophylaxis
     Dosage: UNK
     Dates: start: 20211102
  49. EDOXABAN TOSYLATE [Concomitant]
     Active Substance: EDOXABAN TOSYLATE
     Indication: Venous thrombosis limb
     Dosage: UNK
     Dates: start: 20220610, end: 20230217

REACTIONS (4)
  - Neuropathy peripheral [Not Recovered/Not Resolved]
  - Platelet count decreased [Recovering/Resolving]
  - Neutrophil count decreased [Recovered/Resolved]
  - Underdose [Unknown]

NARRATIVE: CASE EVENT DATE: 20210806
